FAERS Safety Report 5133512-6 (Version None)
Quarter: 2006Q4

REPORT INFORMATION
  Report Type: 
  Country: None (occurrence: None)
  Receive Date: 20061018
  Receipt Date: 20061009
  Transmission Date: 20070319
  Serious: Yes (Hospitalization, Other)
  Sender: FDA-Public Use
  Company Number: 2006123275

PATIENT
  Age: 28 Year
  Sex: Female
  Weight: 51.7101 kg

DRUGS (3)
  1. DEPO-PROVERA [Suspect]
     Indication: CONTRACEPTION
     Dosage: 150 MG (150 MG, EVERY 3 MONTHS)
     Route: 030
  2. PROTONIX [Concomitant]
  3. ATENOLOL [Concomitant]

REACTIONS (1)
  - PANCREATITIS [None]
